FAERS Safety Report 21025335 (Version 1)
Quarter: 2022Q2

REPORT INFORMATION
  Report Type: Spontaneous
  Country: RU (occurrence: RU)
  Receive Date: 20220630
  Receipt Date: 20220630
  Transmission Date: 20220721
  Serious: Yes (Other)
  Sender: FDA-Public Use
  Company Number: RU-HETERO-HET2022RU01459

PATIENT
  Age: 39 Year
  Sex: Male

DRUGS (1)
  1. LEVETIRACETAM [Suspect]
     Active Substance: LEVETIRACETAM
     Indication: Product used for unknown indication
     Dosage: 500 MG, EVERY TWO DAYS
     Route: 048
     Dates: start: 20220301, end: 20220305

REACTIONS (1)
  - Temporal lobe epilepsy [Recovering/Resolving]

NARRATIVE: CASE EVENT DATE: 20220306
